FAERS Safety Report 5251467-0 (Version None)
Quarter: 2007Q1

REPORT INFORMATION
  Report Type: 
  Country: None (occurrence: None)
  Receive Date: 20070228
  Receipt Date: 20060615
  Transmission Date: 20070707
  Serious: No
  Sender: FDA-Public Use
  Company Number: US-GLAXOSMITHKLINE-A0605419A

PATIENT
  Age: 40 Year
  Sex: Female
  Weight: 108.2 kg

DRUGS (10)
  1. LAMICTAL [Suspect]
     Dosage: 50MG TWICE PER DAY
     Route: 048
     Dates: start: 20060301, end: 20060401
  2. MEDROL [Suspect]
  3. PREDNISONE [Suspect]
  4. ESTRACE [Concomitant]
  5. PROVERA [Concomitant]
  6. SYNTHROID [Concomitant]
  7. TOPAMAX [Concomitant]
  8. ZOLOFT [Concomitant]
  9. KLONOPIN [Concomitant]
  10. VYTORIN [Concomitant]

REACTIONS (6)
  - DRUG HYPERSENSITIVITY [None]
  - FATIGUE [None]
  - FLUSHING [None]
  - HERPES VIRUS INFECTION [None]
  - PHARMACEUTICAL PRODUCT COMPLAINT [None]
  - RASH [None]
